FAERS Safety Report 7570038-4 (Version None)
Quarter: 2011Q2

REPORT INFORMATION
  Report Type: 
  Country: None (occurrence: None)
  Receive Date: 20110624
  Receipt Date: 20110617
  Transmission Date: 20111010
  Serious: Yes (Hospitalization, Other)
  Sender: FDA-Public Use
  Company Number: US-JNJFOC-20100704689

PATIENT
  Sex: Female

DRUGS (14)
  1. LEVAQUIN [Suspect]
     Route: 048
     Dates: start: 20060201
  2. STEROIDS NOS [Suspect]
     Indication: INTERSTITIAL LUNG DISEASE
     Route: 065
  3. LEVAQUIN [Suspect]
     Indication: BRONCHITIS
     Route: 048
     Dates: start: 20051001
  4. LEVAQUIN [Suspect]
     Route: 048
     Dates: start: 20060201
  5. LEVAQUIN [Suspect]
     Indication: PRODUCT USED FOR UNKNOWN INDICATION
     Route: 042
  6. LEVAQUIN [Suspect]
     Route: 048
     Dates: start: 20051101
  7. LEVAQUIN [Suspect]
     Route: 048
     Dates: start: 20051101
  8. LEVAQUIN [Suspect]
     Route: 048
     Dates: start: 20060101
  9. PREDNISOLONE [Suspect]
     Indication: PAIN
     Route: 048
     Dates: start: 20050101, end: 20100101
  10. LEVAQUIN [Suspect]
     Route: 048
     Dates: start: 20060101
  11. LEVAQUIN [Suspect]
     Route: 048
     Dates: start: 20051201
  12. LEVAQUIN [Suspect]
     Indication: PNEUMONIA PRIMARY ATYPICAL
     Route: 048
     Dates: start: 20051001
  13. LEVAQUIN [Suspect]
     Route: 048
     Dates: start: 20051201
  14. STEROIDS NOS [Suspect]
     Route: 042
     Dates: start: 20060701

REACTIONS (7)
  - MENISCUS LESION [None]
  - TENDON INJURY [None]
  - TENDONITIS [None]
  - MUSCLE STRAIN [None]
  - TENOSYNOVITIS [None]
  - LIGAMENT RUPTURE [None]
  - TENDON RUPTURE [None]
